FAERS Safety Report 8745920 (Version 2)
Quarter: 2012Q4

REPORT INFORMATION
  Report Type: 
  Country: US (occurrence: US)
  Receive Date: 20120827
  Receipt Date: 20121105
  Transmission Date: 20130627
  Serious: No
  Sender: FDA-Public Use
  Company Number: US-PFIZER INC-2012205722

PATIENT
  Age: 70 Year
  Sex: Female
  Weight: 48.53 kg

DRUGS (3)
  1. SUTENT [Suspect]
     Indication: METASTATIC RENAL CARCINOMA
     Dosage: 50 mg, 42 days cycle
     Dates: start: 201102, end: 201205
  2. SUTENT [Suspect]
     Dosage: 50 mg, alternate day
     Dates: start: 2012
  3. SYNTHROID [Concomitant]
     Indication: THYROID CYST (NOT ADENOMA)
     Dosage: 0.88 ug, UNK
     Dates: start: 1970

REACTIONS (7)
  - Stomatitis [Recovering/Resolving]
  - Herpes zoster [Recovered/Resolved]
  - Weight decreased [Recovered/Resolved]
  - Hyperaesthesia [Recovering/Resolving]
  - Skin exfoliation [Recovering/Resolving]
  - Impaired healing [Recovered/Resolved]
  - Blood pressure increased [Unknown]
